FAERS Safety Report 15038371 (Version 24)
Quarter: 2022Q2

REPORT INFORMATION
  Report Type: Spontaneous
  Country: GB (occurrence: GB)
  Receive Date: 20180620
  Receipt Date: 20220617
  Transmission Date: 20220721
  Serious: Yes (Hospitalization, Other)
  Sender: FDA-Public Use
  Company Number: GB-EMA-DD-20180419-KUMARNVEVHP-093322

PATIENT
  Age: 35 Year
  Sex: Female

DRUGS (16)
  1. SERTRALINE [Suspect]
     Active Substance: SERTRALINE HYDROCHLORIDE
     Indication: Schizophrenia
     Dosage: 50 MG (CAD6C152-DABA-3EEE-AD04-254C7F3495C1, 34518479)
     Route: 065
  2. SERTRALINE [Suspect]
     Active Substance: SERTRALINE HYDROCHLORIDE
     Dosage: 100 MG (CAD6C152-DABA-3EEE-AD04-254C7F3495C1, 34518479)
     Route: 065
  3. SERTRALINE [Suspect]
     Active Substance: SERTRALINE HYDROCHLORIDE
     Dosage: 150 MG (CAD6C152-DABA-3EEE-AD04-254C7F3495C1, 34518479)
     Route: 065
  4. OLANZAPINE [Suspect]
     Active Substance: OLANZAPINE
     Indication: Schizophrenia
     Dosage: 10 MG (C8E59C85-CF78-3AB7-8D45-15DC18A2E05B, 87C7818A)
     Route: 065
  5. OLANZAPINE [Suspect]
     Active Substance: OLANZAPINE
     Dosage: 15 MG (C8E59C85-CF78-3AB7-8D45-15DC18A2E05B, 87C7818A)
     Route: 065
  6. OLANZAPINE [Suspect]
     Active Substance: OLANZAPINE
     Dosage: 5 MG (C8E59C85-CF78-3AB7-8D45-15DC18A2E05B, 87C7818A)
     Route: 065
  7. OLANZAPINE [Suspect]
     Active Substance: OLANZAPINE
     Dosage: 15 MG (C8E59C85-CF78-3AB7-8D45-15DC1)
     Route: 065
  8. OLANZAPINE [Suspect]
     Active Substance: OLANZAPINE
     Dosage: 10 MG (C8E59C85-CF78-3AB7-8D45-15DC1)_
     Route: 065
  9. DIAZEPAM [Suspect]
     Active Substance: DIAZEPAM
     Indication: Schizophrenia
     Dosage: 5 MG (38769A9F-9F42-3075-B42A-32884064ACDD, 06C20431)
     Route: 065
  10. DIAZEPAM [Suspect]
     Active Substance: DIAZEPAM
     Dosage: 15 MG (38769A9F-9F42-3075-B42A-32884064ACDD, 06C20431)
     Route: 065
  11. ARIPIPRAZOLE [Suspect]
     Active Substance: ARIPIPRAZOLE
     Indication: Schizophrenia
     Dosage: 5 MG (4D0590ED-0867-31A2-86B6-2065510F9A24, 2EEEC365)
     Route: 065
  12. ARIPIPRAZOLE [Suspect]
     Active Substance: ARIPIPRAZOLE
     Dosage: 10 MG (4D0590ED-0867-31A2-86B6-2065510F9A24, 2EEEC365)
     Route: 065
  13. OMEPRAZOLE SODIUM [Suspect]
     Active Substance: OMEPRAZOLE SODIUM
     Indication: Schizophrenia
     Dosage: 3 MG (C8E59C85-CF78-3AB7-8D45-15DC18A2E05B, 87C7818A)
     Route: 065
  14. OMEPRAZOLE SODIUM [Suspect]
     Active Substance: OMEPRAZOLE SODIUM
     Dosage: 5 MG (C8E59C85-CF78-3AB7-8D45-15DC18A2E05B, 87C7818A)
     Route: 065
  15. OMEPRAZOLE SODIUM [Suspect]
     Active Substance: OMEPRAZOLE SODIUM
     Dosage: UNK (C8E59C85-CF78-3AB7-8D45-15DC18A2E05B, 87C7818A)
     Route: 065
  16. RISPERDAL [Suspect]
     Active Substance: RISPERIDONE
     Indication: Schizophrenia
     Dosage: 3 MG (6EE39F43-FBD9-382D-A0B8-7D01A9ACFB31, B30F0E90)
     Route: 048

REACTIONS (7)
  - Dehydration [Unknown]
  - Sepsis [Unknown]
  - Social avoidant behaviour [Unknown]
  - Schizophrenia [Unknown]
  - Disease recurrence [Unknown]
  - Off label use [Unknown]
  - Drug ineffective for unapproved indication [Unknown]
